FAERS Safety Report 9603392 (Version 1)
Quarter: 2013Q4

REPORT INFORMATION
  Report Type: Not Available
  Country: SE (occurrence: SE)
  Receive Date: 20131007
  Receipt Date: 20131007
  Transmission Date: 20140711
  Serious: Yes (Hospitalization)
  Sender: FDA-Public Use
  Company Number: SE-IAC JAPAN XML-GBR-2013-0015873

PATIENT
  Age: 90 Year
  Sex: Female

DRUGS (12)
  1. NORSPAN 5 MIKROGRAM/ TIMME DEPOTPLASTER [Suspect]
     Indication: PAIN
     Dosage: 5 MCG, Q1H
     Route: 062
     Dates: start: 20130425, end: 20130613
  2. OXYNORM 5 MG KAPSEL, HARD [Concomitant]
     Dosage: 5 MG, UNK
  3. TRAVATAN [Concomitant]
     Dosage: 40 MCG, UNK
     Route: 047
  4. ZOPIKLON [Concomitant]
  5. SERTRALIN                          /01011401/ [Concomitant]
  6. DUROFERON [Concomitant]
     Dosage: 100 MG, UNK
  7. FURIX [Concomitant]
     Dosage: 40 MG, UNK
  8. MADOPARK [Concomitant]
     Dosage: 100MG/25MG
  9. MADOPARK QUICK [Concomitant]
     Dosage: 50MG/12.5MG
  10. TROMBYL [Concomitant]
  11. BETOPTIC S [Concomitant]
  12. OESTRIOL [Concomitant]

REACTIONS (3)
  - Pulmonary hypertension [Recovered/Resolved]
  - Depressed level of consciousness [Recovered/Resolved]
  - Oxygen saturation decreased [Recovered/Resolved]
